FAERS Safety Report 23099507 (Version 1)
Quarter: 2023Q4

REPORT INFORMATION
  Report Type: Spontaneous
  Country: DE (occurrence: DE)
  Receive Date: 20231024
  Receipt Date: 20231024
  Transmission Date: 20240110
  Serious: Yes (Other)
  Sender: FDA-Public Use
  Company Number: DE-EMBRYOTOX-202211425

PATIENT
  Sex: Male
  Weight: 3.91 kg

DRUGS (2)
  1. VENLAFAXINE [Suspect]
     Active Substance: VENLAFAXINE HYDROCHLORIDE
     Indication: Depression
     Dosage: 112.5 MILLIGRAM, QD
     Route: 064
     Dates: start: 20220319, end: 20221217
  2. ASPIRIN [Concomitant]
     Active Substance: ASPIRIN
     Indication: Headache
     Dosage: 500 MILLIGRAM, QD
     Route: 064
     Dates: start: 20221115, end: 20221115

REACTIONS (3)
  - Myoclonus [Unknown]
  - Neonatal seizure [Unknown]
  - Foetal exposure during pregnancy [Unknown]
